FAERS Safety Report 9393676 (Version 2)
Quarter: 2014Q1

REPORT INFORMATION
  Report Type: Spontaneous
  Country: US (occurrence: US)
  Receive Date: 20130710
  Receipt Date: 20140128
  Transmission Date: 20141002
  Serious: Yes (Hospitalization, Other)
  Sender: FDA-Public Use
  Company Number: US-BAYER-2013-084013

PATIENT
  Age: 33 Year
  Sex: Female

DRUGS (13)
  1. YAZ [Suspect]
     Indication: ACNE
     Dosage: UNK
  2. YASMIN [Suspect]
     Indication: ACNE
  3. AUGMENTIN [Concomitant]
  4. NORCO [Concomitant]
  5. OMEPRAZOLE [Concomitant]
  6. TRAMADOL [Concomitant]
  7. POTASSIUM CHLORIDE [Concomitant]
  8. DONNATAL [Concomitant]
  9. LIDOCAINE VISCOUS [Concomitant]
  10. MAALOX [Concomitant]
  11. ZOFRAN [Concomitant]
  12. PEPCID [Concomitant]
  13. PEPTOBISMOL [Concomitant]

REACTIONS (8)
  - Gallbladder injury [None]
  - Gallbladder disorder [None]
  - Cholecystitis acute [None]
  - Cholecystitis infective [None]
  - Pain [None]
  - Fear of disease [None]
  - Injury [None]
  - Pain [None]
